FAERS Safety Report 9166804 (Version 2)
Quarter: 2014Q1

REPORT INFORMATION
  Report Type: Spontaneous
  Country: US (occurrence: US)
  Receive Date: 20121108
  Receipt Date: 20140122
  Transmission Date: 20141002
  Serious: Yes (Death, Hospitalization, Other)
  Sender: FDA-Public Use
  Company Number: US-RB-046384-12

PATIENT
  Age: 25 Year
  Sex: Male

DRUGS (2)
  1. SUBOXONE FILM [Suspect]
     Indication: PRODUCT USED FOR UNKNOWN INDICATION
     Dosage: SUBOXONE FILM, DOSING DETAILS UNSPECIFIED
     Route: 048
     Dates: end: 201209
  2. COCAINE [Suspect]
     Indication: PRODUCT USED FOR UNKNOWN INDICATION
     Dosage: UNKNOWN DOSING DETAILS; INGESTED VIA UNSPECIFIED ROUTE
     Route: 065
     Dates: end: 201209

REACTIONS (7)
  - Completed suicide [Fatal]
  - Coma [Fatal]
  - Respiratory depression [Fatal]
  - Acidosis [Recovered/Resolved]
  - Electrocardiogram abnormal [Recovered/Resolved]
  - Hypotension [Recovered/Resolved]
  - Intentional drug misuse [Recovered/Resolved]
